FAERS Safety Report 5912529-5 (Version None)
Quarter: 2008Q4

REPORT INFORMATION
  Report Type: 
  Country: None (occurrence: None)
  Receive Date: 20081006
  Receipt Date: 20080822
  Transmission Date: 20090506
  Serious: Yes (Life-Threatening, Other)
  Sender: FDA-Public Use
  Company Number: US024752

PATIENT
  Age: 83 Year
  Sex: Male

DRUGS (1)
  1. TRISENOX [Suspect]
     Dosage: INTRAVENOUS DRIP
     Route: 041
     Dates: start: 20080722, end: 20080813

REACTIONS (7)
  - ALANINE AMINOTRANSFERASE INCREASED [None]
  - ALTERED STATE OF CONSCIOUSNESS [None]
  - ASPARTATE AMINOTRANSFERASE INCREASED [None]
  - ASTERIXIS [None]
  - DIALYSIS [None]
  - HEPATIC FUNCTION ABNORMAL [None]
  - TUBULOINTERSTITIAL NEPHRITIS [None]
